FAERS Safety Report 6780242-0 (Version None)
Quarter: 2010Q2

REPORT INFORMATION
  Report Type: 
  Country: None (occurrence: None)
  Receive Date: 20100618
  Receipt Date: 20100610
  Transmission Date: 20101027
  Serious: Yes (Other)
  Sender: FDA-Public Use
  Company Number: GB-ABBOTT-10P-167-0646145-00

PATIENT
  Age: 26 Year
  Sex: Female

DRUGS (3)
  1. KALETRA [Suspect]
     Indication: HIV INFECTION
     Route: 048
     Dates: start: 20080206
  2. SUSTIVA [Suspect]
     Indication: HIV INFECTION
     Route: 048
     Dates: start: 20070808, end: 20080206
  3. TRUVADA [Suspect]
     Indication: HIV INFECTION
     Dosage: 9-OCT-2007 TO 11-OCT-2007
     Route: 048
     Dates: start: 20070808

REACTIONS (3)
  - ANAEMIA [None]
  - CAESAREAN SECTION [None]
  - NORMAL NEWBORN [None]
